FAERS Safety Report 24829160 (Version 1)
Quarter: 2025Q1

REPORT INFORMATION
  Report Type: Spontaneous
  Country: KR (occurrence: KR)
  Receive Date: 20250110
  Receipt Date: 20250110
  Transmission Date: 20250408
  Serious: Yes (Hospitalization, Other)
  Sender: ORGANON
  Company Number: KR-ORGANON-O2501KOR000276

PATIENT
  Age: 65 Year
  Sex: Female
  Weight: 71.2 kg

DRUGS (5)
  1. ATORVASTATIN CALCIUM\EZETIMIBE [Suspect]
     Active Substance: ATORVASTATIN CALCIUM\EZETIMIBE
     Indication: Hyperlipidaemia
     Dosage: 1 DOSAGE FORM, QD (FILM-COATED TABLET)
     Route: 048
     Dates: start: 20200915
  2. TIBOLONE [Suspect]
     Active Substance: TIBOLONE
     Indication: Menopausal disorder
     Dosage: 1 DOSAGE FORM, QD
     Dates: start: 20201031
  3. CHOLECALCIFEROL [Concomitant]
     Active Substance: CHOLECALCIFEROL
     Dosage: 1 DOSAGE FORM, QM
     Route: 048
     Dates: start: 20200915
  4. OMEGA-3-ACID ETHYL ESTER [Concomitant]
     Active Substance: OMEGA-3-ACID ETHYL ESTERS
     Dosage: 1 DOSAGE FORM, BID (SOFT CAPSULE, LIQUID)
     Route: 048
     Dates: start: 20180616
  5. LEVOCETIRIZINE HYDROCHLORIDE [Concomitant]
     Active Substance: LEVOCETIRIZINE HYDROCHLORIDE
     Dosage: 1 DOSAGE FORM, QD
     Route: 048
     Dates: start: 20210508

REACTIONS (3)
  - Pancreatitis necrotising [Not Recovered/Not Resolved]
  - Amylase increased [Not Recovered/Not Resolved]
  - Lipase increased [Not Recovered/Not Resolved]

NARRATIVE: CASE EVENT DATE: 20210801
